FAERS Safety Report 20329943 (Version 5)
Quarter: 2022Q2

REPORT INFORMATION
  Report Type: Report from Study
  Country: US (occurrence: US)
  Receive Date: 20220113
  Receipt Date: 20220613
  Transmission Date: 20220721
  Serious: No
  Sender: FDA-Public Use
  Company Number: US-BIOVITRUM-2022US00408

PATIENT
  Age: 51 Year
  Sex: Female

DRUGS (3)
  1. KINERET [Suspect]
     Active Substance: ANAKINRA
     Indication: Monoclonal gammopathy
     Route: 058
     Dates: start: 20211021
  2. KINERET [Suspect]
     Active Substance: ANAKINRA
     Indication: Myelodysplastic syndrome
     Route: 058
  3. KINERET [Suspect]
     Active Substance: ANAKINRA
     Route: 058
     Dates: start: 20211121

REACTIONS (6)
  - COVID-19 [Unknown]
  - Blood triglycerides increased [Unknown]
  - Herpes zoster [Unknown]
  - Malaise [Unknown]
  - Product dose omission issue [Unknown]
  - Off label use [Unknown]

NARRATIVE: CASE EVENT DATE: 20211021
